FAERS Safety Report 9455948 (Version 1)
Quarter: 2013Q3

REPORT INFORMATION
  Report Type: Spontaneous
  Country: US (occurrence: US)
  Receive Date: 20130813
  Receipt Date: 20130813
  Transmission Date: 20140515
  Serious: Yes (Other)
  Sender: FDA-Public Use
  Company Number: US-ASTRAZENECA-2013SE61466

PATIENT
  Age: 70 Year
  Sex: Female
  Weight: 67.1 kg

DRUGS (3)
  1. NEXIUM [Suspect]
     Indication: GASTROOESOPHAGEAL REFLUX DISEASE
     Route: 048
     Dates: start: 2003
  2. CALCIUM/MAGNESIUM/ZINC [Concomitant]
     Indication: BONE DISORDER
     Dosage: 333/133/5MG DAILY
     Route: 048
     Dates: start: 2013
  3. PROLIA [Concomitant]
     Indication: OSTEOPOROSIS
     Dosage: EVERY SIX MONTHS
     Route: 058
     Dates: start: 2013

REACTIONS (5)
  - Osteoporosis [Unknown]
  - Bone loss [Unknown]
  - Hunger [Not Recovered/Not Resolved]
  - Tremor [Not Recovered/Not Resolved]
  - Abdominal pain [Not Recovered/Not Resolved]
